FAERS Safety Report 21827473 (Version 1)
Quarter: 2023Q1

REPORT INFORMATION
  Report Type: Spontaneous
  Country: US (occurrence: US)
  Receive Date: 20230106
  Receipt Date: 20230106
  Transmission Date: 20230418
  Serious: Yes (Other)
  Sender: FDA-Public Use
  Company Number: US-TERSERA THERAPEUTICS LLC-2022TRS001561

PATIENT

DRUGS (4)
  1. PRIALT [Suspect]
     Active Substance: ZICONOTIDE ACETATE
     Indication: Spinal pain
     Dosage: 0.162 MCG, QD (CONCENTRATION: 26 MCG/ML)
     Route: 037
  2. MORPHINE [Suspect]
     Active Substance: MORPHINE
     Indication: Spinal pain
     Dosage: 0.116 MG, QD (CONCENTRATION: 18.5 MG/ML)
     Route: 037
  3. MORPHINE [Suspect]
     Active Substance: MORPHINE
     Dosage: 4 MG, QD (CONCENTRATION: 25 MG/ML)
     Route: 037
  4. MORPHINE [Suspect]
     Active Substance: MORPHINE
     Dosage: 3 MG, QD
     Route: 037

REACTIONS (2)
  - Hallucination [Not Recovered/Not Resolved]
  - Off label use [Unknown]
